FAERS Safety Report 21892028 (Version 1)
Quarter: 2023Q1

REPORT INFORMATION
  Report Type: Spontaneous
  Country: US (occurrence: None)
  Receive Date: 20230120
  Receipt Date: 20230120
  Transmission Date: 20230418
  Serious: Yes (Disabling, Other)
  Sender: FDA-Public Use
  Company Number: None

PATIENT
  Sex: Female

DRUGS (3)
  1. MAGNESIUM CITRATE [Suspect]
     Active Substance: MAGNESIUM CITRATE
     Indication: Colonoscopy
     Route: 048
  2. VITAMINS [Concomitant]
     Active Substance: VITAMINS
  3. elderberry gummies [Concomitant]

REACTIONS (5)
  - Diarrhoea [None]
  - Diarrhoea [None]
  - Fatigue [None]
  - Asthenia [None]
  - Recalled product administered [None]

NARRATIVE: CASE EVENT DATE: 20220531
